FAERS Safety Report 5587221-X (Version None)
Quarter: 2008Q1

REPORT INFORMATION
  Report Type: 
  Country: None (occurrence: None)
  Receive Date: 20080110
  Receipt Date: 20070813
  Transmission Date: 20080703
  Serious: No
  Sender: FDA-Public Use
  Company Number: US-BRISTOL-MYERS SQUIBB COMPANY-13875919

PATIENT
  Age: 67 Year
  Sex: Female
  Weight: 52 kg

DRUGS (1)
  1. CARDIOLITE INJ [Suspect]

REACTIONS (2)
  - DYSPHASIA [None]
  - TREMOR [None]
